FAERS Safety Report 5393361-0 (Version None)
Quarter: 2007Q3

REPORT INFORMATION
  Report Type: 
  Country: None (occurrence: None)
  Receive Date: 20070723
  Receipt Date: 20070716
  Transmission Date: 20080115
  Serious: Yes (Hospitalization, Other)
  Sender: FDA-Public Use
  Company Number: PHNU2007DE01241

PATIENT
  Age: 65 Year
  Sex: Female
  Weight: 72 kg

DRUGS (3)
  1. LEPONEX [Suspect]
     Dosage: 100 MG, ONCE/SINGLE
     Route: 048
     Dates: start: 20070314, end: 20070314
  2. THYRONAJOD [Suspect]
     Indication: GOITRE
     Dosage: 50 UG/DAY
     Route: 048
     Dates: start: 20070101
  3. AMOXICILLIN [Concomitant]

REACTIONS (10)
  - ACCIDENTAL EXPOSURE [None]
  - APHASIA [None]
  - CEREBROVASCULAR ACCIDENT [None]
  - DYSARTHRIA [None]
  - LOSS OF CONSCIOUSNESS [None]
  - MIOSIS [None]
  - RETROGRADE AMNESIA [None]
  - SOMNOLENCE [None]
  - SPEECH DISORDER [None]
  - TRANSIENT ISCHAEMIC ATTACK [None]
